FAERS Safety Report 13694883 (Version 1)
Quarter: 2017Q2

REPORT INFORMATION
  Report Type: Spontaneous
  Country: FR (occurrence: FR)
  Receive Date: 20170627
  Receipt Date: 20170627
  Transmission Date: 20170830
  Serious: Yes (Other)
  Sender: FDA-Public Use
  Company Number: FR-BAYER-2017-121547

PATIENT
  Age: 33 Year
  Sex: Female

DRUGS (1)
  1. MIRENA [Suspect]
     Active Substance: LEVONORGESTREL
     Indication: CONTRACEPTION
     Dosage: 20 MCG/24HR, CONT
     Route: 015
     Dates: start: 20130301, end: 20160401

REACTIONS (17)
  - Fatigue [Not Recovered/Not Resolved]
  - Loss of libido [Not Recovered/Not Resolved]
  - Urticaria [Not Recovered/Not Resolved]
  - Weight increased [Not Recovered/Not Resolved]
  - Tremor [Not Recovered/Not Resolved]
  - Alopecia [Not Recovered/Not Resolved]
  - Breast pain [Not Recovered/Not Resolved]
  - Vaginal odour [Not Recovered/Not Resolved]
  - Anxiety [Not Recovered/Not Resolved]
  - Palpitations [Not Recovered/Not Resolved]
  - Swelling face [Not Recovered/Not Resolved]
  - Vaginal discharge [Not Recovered/Not Resolved]
  - Amnesia [Not Recovered/Not Resolved]
  - Irritability [Not Recovered/Not Resolved]
  - Migraine [Not Recovered/Not Resolved]
  - Mood swings [Not Recovered/Not Resolved]
  - Furuncle [Not Recovered/Not Resolved]

NARRATIVE: CASE EVENT DATE: 201304
